FAERS Safety Report 5964788-0 (Version None)
Quarter: 2008Q4

REPORT INFORMATION
  Report Type: 
  Country: None (occurrence: None)
  Receive Date: 20081124
  Receipt Date: 20081124
  Transmission Date: 20090506
  Serious: No
  Sender: FDA-Public Use
  Company Number: None

PATIENT
  Age: 18 Year
  Sex: Male
  Weight: 86.1834 kg

DRUGS (2)
  1. CYMBALTA [Suspect]
     Indication: ANXIETY
     Dosage: 1 60MG PILL DAILY PO
     Route: 048
     Dates: start: 20080801, end: 20081111
  2. CYMBALTA [Suspect]
     Indication: PANIC ATTACK
     Dosage: 1 60MG PILL DAILY PO
     Route: 048
     Dates: start: 20080801, end: 20081111

REACTIONS (6)
  - CONDITION AGGRAVATED [None]
  - DEPRESSION [None]
  - FEELING ABNORMAL [None]
  - NICOTINE DEPENDENCE [None]
  - PARAESTHESIA [None]
  - THINKING ABNORMAL [None]
